FAERS Safety Report 9440167 (Version 1)
Quarter: 2013Q3

REPORT INFORMATION
  Report Type: Spontaneous
  Country: US (occurrence: US)
  Receive Date: 20130805
  Receipt Date: 20130805
  Transmission Date: 20140515
  Serious: Yes (Other)
  Sender: FDA-Public Use
  Company Number: PHEH2013US016064

PATIENT
  Sex: Female

DRUGS (11)
  1. LOTREL [Suspect]
     Dosage: 1 DF (10 MG AMLO, 20 MG BENZ), UNK
  2. ATENOLOL [Concomitant]
     Dosage: 100 MG, UNK
  3. LIPITOR [Concomitant]
     Dosage: 80 MG, UNK
  4. CLONIDINE [Concomitant]
     Dosage: UNK UKN, UNK
  5. PLAVIX [Concomitant]
     Dosage: 75 MG, UNK
  6. POTASSIUM [Concomitant]
  7. SINGULAR [Concomitant]
     Dosage: 10 MG, UNK
  8. ADVAIR [Concomitant]
     Dosage: 550 UKN, UNK
  9. SPIRIVA [Concomitant]
     Dosage: UNK UKN, UNK
  10. NITROGLYCERIN [Concomitant]
     Dosage: UNK UKN, UNK
  11. ALBUTEROL [Concomitant]
     Dosage: UNK UKN, UNK

REACTIONS (5)
  - Chronic obstructive pulmonary disease [Unknown]
  - Cough [Recovering/Resolving]
  - Condition aggravated [Unknown]
  - Myocardial infarction [Unknown]
  - Urinary incontinence [Unknown]
